FAERS Safety Report 14900573 (Version 4)
Quarter: 2018Q2

REPORT INFORMATION
  Report Type: Spontaneous
  Country: US (occurrence: US)
  Receive Date: 20180516
  Receipt Date: 20180612
  Transmission Date: 20180711
  Serious: Yes (Hospitalization, Other)
  Sender: FDA-Public Use
  Company Number: US-PFIZER INC-2018198252

PATIENT
  Age: 50 Year
  Sex: Male
  Weight: 83 kg

DRUGS (7)
  1. EPIPEN [Concomitant]
     Active Substance: EPINEPHRINE
     Indication: ALLERGY TO ARTHROPOD STING
     Dosage: 0.3 MG, AS NEEDED
     Route: 030
     Dates: start: 2017
  2. FENTANYL. [Concomitant]
     Active Substance: FENTANYL
     Dosage: 200 UG, UNK
     Dates: start: 20180501
  3. ROCURONIUM BROMIDE. [Suspect]
     Active Substance: ROCURONIUM BROMIDE
     Indication: ANAESTHESIA
  4. ROCURONIUM BROMIDE. [Suspect]
     Active Substance: ROCURONIUM BROMIDE
     Indication: ENDOTRACHEAL INTUBATION
     Dosage: 100 MG, UNK
     Route: 042
     Dates: start: 20180501, end: 20180501
  5. ROCURONIUM BROMIDE. [Suspect]
     Active Substance: ROCURONIUM BROMIDE
     Indication: PARALYSIS
  6. PROPOFOL. [Concomitant]
     Active Substance: PROPOFOL
     Dosage: 450 MG, UNK
     Dates: start: 20180501
  7. SUCCINYLCHOLINE [Concomitant]
     Active Substance: SUCCINYLCHOLINE
     Dosage: 160 MG, UNK

REACTIONS (1)
  - Drug effect incomplete [Recovered/Resolved]

NARRATIVE: CASE EVENT DATE: 20180501
